FAERS Safety Report 10570432 (Version 2)
Quarter: 2014Q4

REPORT INFORMATION
  Report Type: Spontaneous
  Country: JP (occurrence: JP)
  Receive Date: 20141107
  Receipt Date: 20141120
  Transmission Date: 20150529
  Serious: Yes (Death)
  Sender: FDA-Public Use
  Company Number: JP-JNJFOC-20141018923

PATIENT
  Age: 78 Year
  Sex: Male
  Weight: 53 kg

DRUGS (7)
  1. XARELTO [Suspect]
     Active Substance: RIVAROXABAN
     Indication: CEREBROVASCULAR ACCIDENT PROPHYLAXIS
     Route: 048
     Dates: start: 20141018, end: 20141022
  2. TOWAMIN [Concomitant]
     Active Substance: ATENOLOL
     Indication: HYPERTENSION
     Route: 048
     Dates: start: 20141020, end: 20141020
  3. AZILSARTAN [Concomitant]
     Active Substance: AZILSARTAN KAMEDOXOMIL
     Route: 048
     Dates: start: 20141017, end: 20141023
  4. CONIEL [Concomitant]
     Active Substance: BENIDIPINE HYDROCHLORIDE
     Route: 048
     Dates: start: 20141017, end: 20141023
  5. GRTPA [Concomitant]
     Active Substance: ALTEPLASE
     Dosage: DAILY DOSE 33.5999985 MG
     Route: 042
     Dates: start: 20141015, end: 20141015
  6. PERDIPINE-LA [Concomitant]
     Indication: HYPERTENSION
     Route: 048
     Dates: start: 20141020, end: 20141023
  7. RADICUT [Concomitant]
     Active Substance: EDARAVONE
     Route: 041
     Dates: start: 20141015, end: 20141025

REACTIONS (1)
  - Cerebral infarction [Fatal]

NARRATIVE: CASE EVENT DATE: 20141022
